FAERS Safety Report 19766254 (Version 1)
Quarter: 2021Q3

REPORT INFORMATION
  Report Type: Spontaneous
  Country: US (occurrence: US)
  Receive Date: 20210826
  Receipt Date: 20210826
  Transmission Date: 20211014
  Serious: No
  Sender: FDA-Public Use
  Company Number: None

PATIENT
  Sex: Female

DRUGS (1)
  1. FORTEO [Suspect]
     Active Substance: TERIPARATIDE
     Dosage: ?          OTHER STRENGTH:250 UG/ML;?
     Route: 058
     Dates: start: 20210518

REACTIONS (6)
  - Urticaria [None]
  - Rash [None]
  - Abdominal discomfort [None]
  - Swollen tongue [None]
  - Heart rate increased [None]
  - Pharyngeal swelling [None]
